FAERS Safety Report 6925182-9 (Version None)
Quarter: 2010Q3

REPORT INFORMATION
  Report Type: 
  Country: None (occurrence: None)
  Receive Date: 20100816
  Receipt Date: 20100805
  Transmission Date: 20110219
  Serious: Yes (Hospitalization)
  Sender: FDA-Public Use
  Company Number: FR-JNJFOC-20100802144

PATIENT
  Age: 33 Year
  Sex: Female

DRUGS (5)
  1. REMICADE [Suspect]
     Indication: PRODUCT USED FOR UNKNOWN INDICATION
     Route: 042
  2. REMICADE [Suspect]
     Route: 042
  3. IMURAN [Concomitant]
  4. TRIMEBUTINE [Concomitant]
  5. NEXIUM [Concomitant]

REACTIONS (6)
  - EYELID OEDEMA [None]
  - FACE OEDEMA [None]
  - INFUSION RELATED REACTION [None]
  - LIP OEDEMA [None]
  - MALAISE [None]
  - PRURITUS [None]
